FAERS Safety Report 9224112 (Version 1)
Quarter: 2013Q2

REPORT INFORMATION
  Report Type: Spontaneous
  Country: US (occurrence: US)
  Receive Date: 20130411
  Receipt Date: 20130411
  Transmission Date: 20140414
  Serious: No
  Sender: FDA-Public Use
  Company Number: US-PFIZER INC-2013113798

PATIENT
  Age: 62 Year
  Sex: Female
  Weight: 79.37 kg

DRUGS (2)
  1. LYRICA [Suspect]
     Indication: FIBROMYALGIA
     Dosage: 25 MG, 2X/DAY
     Route: 048
     Dates: start: 20130405, end: 20130409
  2. NABUMETONE [Concomitant]
     Dosage: 500 MG, 2X/DAY

REACTIONS (8)
  - Tongue blistering [Unknown]
  - Nausea [Unknown]
  - Abdominal pain upper [Unknown]
  - Gastrooesophageal reflux disease [Unknown]
  - Frustration [Unknown]
  - Drug intolerance [Unknown]
  - Drug ineffective [Unknown]
  - Pain [Unknown]
